FAERS Safety Report 23350293 (Version 1)
Quarter: 2023Q4

REPORT INFORMATION
  Report Type: Spontaneous
  Country: US (occurrence: None)
  Receive Date: 20231228
  Receipt Date: 20231228
  Transmission Date: 20240110
  Serious: No
  Sender: FDA-Public Use
  Company Number: None

PATIENT

DRUGS (6)
  1. CEFAZOLIN SODIUM [Suspect]
     Active Substance: CEFAZOLIN SODIUM
     Dosage: OTHER FREQUENCY : SINGLE DOSE VIAL;?OTHER ROUTE : IV OR I.M. USE;?
     Route: 050
  2. BUPIVACAINE HYDROCHLORIDE [Suspect]
     Active Substance: BUPIVACAINE HYDROCHLORIDE\BUPIVACAINE HYDROCHLORIDE ANHYDROUS
     Dosage: OTHER FREQUENCY : SINGLE DOSE VIAL;?OTHER ROUTE : EPIDURAL-RETROBULBAR ANESTHESIA;?
     Route: 050
  3. SODIUM ACETATE [Suspect]
     Active Substance: SODIUM ACETATE
     Dosage: OTHER FREQUENCY : SINGLE DOSE VIAL ;?
     Route: 042
  4. STERILE WATER FOR INJECTION [Suspect]
     Active Substance: WATER
     Dosage: OTHER FREQUENCY : SINGLE DOSE VIAL;?OTHER ROUTE : FOR DRUG DILUENT USE;?
     Route: 050
  5. PIPERACILLIN AND TAZOBACTAM [Suspect]
     Active Substance: PIPERACILLIN SODIUM\TAZOBACTAM SODIUM
     Dosage: OTHER FREQUENCY : SINGLE DOSE VIAL;?
     Route: 042
  6. CEFTRIAXONE SODIUM [Suspect]
     Active Substance: CEFTRIAXONE SODIUM
     Dosage: OTHER FREQUENCY : SINGLE DOSE VIAL;?OTHER ROUTE : I.M. OR I.V. USE;?
     Route: 050

REACTIONS (2)
  - Product packaging confusion [None]
  - Product label confusion [None]
